FAERS Safety Report 9024296 (Version 2)
Quarter: 2013Q1

REPORT INFORMATION
  Report Type: Spontaneous
  Country: ZA (occurrence: ZA)
  Receive Date: 20130121
  Receipt Date: 20130201
  Transmission Date: 20140127
  Serious: Yes (Other)
  Sender: FDA-Public Use
  Company Number: PHHY2013ZA004534

PATIENT
  Sex: Male
  Weight: 1.98 kg

DRUGS (1)
  1. IMATINIB [Suspect]
     Dosage: MATERNAL DOSE: 400 MG/DAY
     Route: 064

REACTIONS (5)
  - Clinodactyly [Unknown]
  - Low set ears [Unknown]
  - Foetal growth restriction [Unknown]
  - Low birth weight baby [Unknown]
  - Foetal exposure during pregnancy [Unknown]
